FAERS Safety Report 13289258 (Version 1)
Quarter: 2017Q1

REPORT INFORMATION
  Report Type: Spontaneous
  Country: US (occurrence: US)
  Receive Date: 20170303
  Receipt Date: 20170303
  Transmission Date: 20170428
  Serious: Yes (Hospitalization)
  Sender: FDA-Public Use
  Company Number: US-ALLERGAN-1707383US

PATIENT
  Age: 41 Year
  Sex: Female

DRUGS (1)
  1. SAPHRIS [Suspect]
     Active Substance: ASENAPINE MALEATE
     Indication: AFFECTIVE DISORDER
     Dosage: 10 MG, QPM
     Route: 048
     Dates: end: 2016

REACTIONS (4)
  - Somnolence [Unknown]
  - Malaise [Recovered/Resolved]
  - Oral discomfort [Recovered/Resolved]
  - Coma [Recovered/Resolved]

NARRATIVE: CASE EVENT DATE: 2016
